FAERS Safety Report 7789503-X (Version None)
Quarter: 2011Q3

REPORT INFORMATION
  Report Type: 
  Country: None (occurrence: None)
  Receive Date: 20110930
  Receipt Date: 20110922
  Transmission Date: 20111222
  Serious: Yes (Other)
  Sender: FDA-Public Use
  Company Number: JP-ASTRAZENECA-2010SE58463

PATIENT
  Age: 40 Year
  Sex: Female

DRUGS (1)
  1. DIPRIVAN [Suspect]
     Indication: GENERAL ANAESTHESIA
     Route: 042

REACTIONS (3)
  - PAROTID GLAND ENLARGEMENT [None]
  - HYPERAMYLASAEMIA [None]
  - PYREXIA [None]
